FAERS Safety Report 19363097 (Version 1)
Quarter: 2021Q2

REPORT INFORMATION
  Report Type: Spontaneous
  Country: US (occurrence: US)
  Receive Date: 20210602
  Receipt Date: 20210602
  Transmission Date: 20210717
  Serious: No
  Sender: FDA-Public Use
  Company Number: US-PFIZER INC-2021260041

PATIENT
  Age: 12 Year
  Sex: Male

DRUGS (1)
  1. EUCRISA [Suspect]
     Active Substance: CRISABOROLE
     Dosage: UNK

REACTIONS (6)
  - Seasonal allergy [Unknown]
  - Hand dermatitis [Unknown]
  - Dermatitis atopic [Unknown]
  - Rhinitis allergic [Unknown]
  - Eczema [Unknown]
  - Allergic sinusitis [Unknown]
